FAERS Safety Report 7960235-8 (Version None)
Quarter: 2011Q4

REPORT INFORMATION
  Report Type: 
  Country: None (occurrence: None)
  Receive Date: 20111206
  Receipt Date: 20111129
  Transmission Date: 20120403
  Serious: Yes (Hospitalization)
  Sender: FDA-Public Use
  Company Number: US-UCBSA-044843

PATIENT
  Age: 26 Year
  Sex: Female
  Weight: 49.9 kg

DRUGS (40)
  1. CIMZIA [Suspect]
     Route: 058
     Dates: start: 20100504, end: 20100704
  2. PREDNISONE TAB [Concomitant]
     Dosage: DAILY DOSE: 20 MG
     Route: 048
     Dates: start: 20110526, end: 20110608
  3. PREDNISONE TAB [Concomitant]
     Dates: start: 20070101, end: 20070101
  4. AUGMENTIN [Concomitant]
     Dates: start: 20111008, end: 20111019
  5. KEFLEX [Concomitant]
     Indication: CROHN'S DISEASE
     Dates: start: 20110811, end: 20110823
  6. IMODIUM [Concomitant]
     Indication: CROHN'S DISEASE
  7. PREPARATION H [Concomitant]
     Dosage: 4 TIMES AS NEEDED
  8. PREDNISONE TAB [Concomitant]
     Indication: CROHN'S DISEASE
     Dosage: DAILY DOSE: 40 MG
     Dates: start: 20110801
  9. PREDNISONE TAB [Concomitant]
     Route: 042
     Dates: start: 20110601, end: 20110601
  10. PREDNISONE TAB [Concomitant]
     Dosage: DAILY DOSE: 50 MG
     Route: 048
     Dates: start: 20110414, end: 20110427
  11. PREDNISONE TAB [Concomitant]
     Dates: start: 20040101, end: 20040101
  12. AUGMENTIN [Concomitant]
     Indication: CROHN'S DISEASE
     Dates: start: 20110603, end: 20110613
  13. KEFLEX [Concomitant]
     Dates: start: 20110614, end: 20110621
  14. NYSTATIN [Concomitant]
     Dosage: FOUR TIMES DAILY
  15. MULTI-VITAMINS [Concomitant]
  16. CIMZIA [Suspect]
     Indication: CROHN'S DISEASE
     Route: 058
     Dates: start: 20100718
  17. DIPHENOXYLATE HCL + ATROPINE SULFATE [Concomitant]
     Indication: CROHN'S DISEASE
  18. ASACOL [Concomitant]
  19. PREDNISONE TAB [Concomitant]
     Dosage: DAILY DOSE: 40 MG
     Route: 048
     Dates: start: 20110428, end: 20110511
  20. PREDNISONE TAB [Concomitant]
     Dates: start: 20081111
  21. OXYCODONE HCL [Concomitant]
     Indication: PAIN
     Dosage: ONE TABLET EVERY FOUR TO SIX HOURS
  22. PERIDEX [Concomitant]
     Dosage: THREE TIMES DAILY
  23. PROMETHAZINE [Concomitant]
     Indication: NAUSEA
     Dosage: 25MG BID PRN
     Route: 048
  24. CIMZIA [Suspect]
     Route: 058
     Dates: start: 20100304, end: 20100404
  25. PREDNISONE TAB [Concomitant]
     Dosage: DAILY DOSE: 10 MG
     Route: 048
     Dates: start: 20110609
  26. PREDNISONE TAB [Concomitant]
     Dosage: DAILY DOSE: 25 MG
     Route: 048
     Dates: start: 20110512, end: 20110525
  27. PREDNISONE TAB [Concomitant]
     Dosage: DAILY DOSE: 60 MG
     Route: 048
     Dates: start: 20110331, end: 20110413
  28. ASACOL [Concomitant]
     Indication: CROHN'S DISEASE
     Dates: start: 19991105
  29. ACYCLOVIR [Concomitant]
     Indication: CROHN'S DISEASE
     Dates: start: 20110513, end: 20110628
  30. ALBUTEROL [Concomitant]
  31. PREDNISONE TAB [Concomitant]
     Dosage: DAILY DOSE: 60 MG
     Route: 048
     Dates: start: 20110601
  32. PREDNISONE TAB [Concomitant]
     Dosage: 60 MG
     Dates: end: 20110601
  33. PREDNISONE TAB [Concomitant]
     Dates: start: 20020101, end: 20020101
  34. MACROBID [Concomitant]
     Indication: CROHN'S DISEASE
     Dates: start: 20110603, end: 20111004
  35. OMEPRAZOLE [Concomitant]
     Route: 048
  36. LOMOTIL [Concomitant]
     Indication: DIARRHOEA
     Dosage: 2.5-0.025MG TABS, TAKE ONE TID PRN
     Route: 048
  37. FOL CAPS OMEGA 3 [Concomitant]
  38. CIPROFLOXACIN [Concomitant]
     Indication: CROHN'S DISEASE
     Dates: start: 20100706
  39. PANTOPRAZOLE [Concomitant]
     Route: 048
  40. ZOLOFT [Concomitant]
     Dosage: DAILY DOSE:50 MG
     Route: 048

REACTIONS (6)
  - URINARY TRACT INFECTION [None]
  - CROHN'S DISEASE [None]
  - PREGNANCY [None]
  - PREMATURE DELIVERY [None]
  - PYELONEPHRITIS [None]
  - DIARRHOEA [None]
